FAERS Safety Report 10417034 (Version 1)
Quarter: 2014Q3

REPORT INFORMATION
  Report Type: Spontaneous
  Country: CN (occurrence: None)
  Receive Date: 20140826
  Receipt Date: 20140826
  Transmission Date: 20150326
  Serious: No
  Sender: FDA-Public Use
  Company Number: B1017721A

PATIENT
  Age: 63 Year
  Sex: Female

DRUGS (1)
  1. PAROXETINE HYDROCHLORIDE. [Suspect]
     Active Substance: PAROXETINE HYDROCHLORIDE
     Indication: DEPRESSED MOOD
     Route: 048
     Dates: start: 20130312, end: 20130315

REACTIONS (6)
  - Irritability [None]
  - Unevaluable event [None]
  - Psychotic disorder [None]
  - Mobility decreased [None]
  - Nervousness [None]
  - Akathisia [None]

NARRATIVE: CASE EVENT DATE: 20130315
